FAERS Safety Report 6850402-9 (Version None)
Quarter: 2010Q3

REPORT INFORMATION
  Report Type: 
  Country: None (occurrence: None)
  Receive Date: 20100716
  Receipt Date: 20071019
  Transmission Date: 20110219
  Serious: No
  Sender: FDA-Public Use
  Company Number: US-PFIZER INC-2007088334

PATIENT
  Sex: Female
  Weight: 61.3 kg

DRUGS (6)
  1. CHANTIX [Suspect]
     Indication: SMOKING CESSATION THERAPY
     Dates: start: 20070901, end: 20071004
  2. LIPITOR [Concomitant]
  3. ALBUTEROL [Concomitant]
  4. ADVAIR DISKUS 100/50 [Concomitant]
  5. SPIRIVA [Concomitant]
  6. ADVIL LIQUI-GELS [Concomitant]

REACTIONS (3)
  - ABDOMINAL DISCOMFORT [None]
  - BREATH ODOUR [None]
  - HEADACHE [None]
